FAERS Safety Report 9865997 (Version 2)
Quarter: 2014Q1

REPORT INFORMATION
  Report Type: Spontaneous
  Country: US (occurrence: US)
  Receive Date: 20140203
  Receipt Date: 20140203
  Transmission Date: 20141002
  Serious: No
  Sender: FDA-Public Use
  Company Number: US-ALLERGAN-1313838US

PATIENT
  Sex: Female

DRUGS (2)
  1. BOTOX [Suspect]
     Indication: BLEPHAROSPASM
     Dosage: UNK
     Dates: start: 201306, end: 201306
  2. RESTASIS [Suspect]
     Indication: DRY EYE
     Dosage: 1 GTT, QHS
     Route: 047
     Dates: start: 201307

REACTIONS (2)
  - Diplopia [Recovered/Resolved]
  - Eyelid ptosis [Not Recovered/Not Resolved]
